FAERS Safety Report 6139224-4 (Version None)
Quarter: 2009Q2

REPORT INFORMATION
  Report Type: 
  Country: None (occurrence: None)
  Receive Date: 20090401
  Receipt Date: 20090320
  Transmission Date: 20091009
  Serious: Yes (Other)
  Sender: FDA-Public Use
  Company Number: US-PFIZER INC-2009188232

PATIENT
  Sex: Female

DRUGS (5)
  1. FLAGYL [Suspect]
     Dosage: UNK
     Dates: start: 20080818, end: 20080801
  2. PREDNISONE [Suspect]
     Dosage: UNK
     Dates: start: 20080818, end: 20080801
  3. HUMIRA [Suspect]
     Indication: CROHN'S DISEASE
     Dosage: 40 MG, 1 IN 2 WK
     Route: 058
     Dates: start: 20080201, end: 20081116
  4. RANITIDINE [Concomitant]
     Dosage: UNK
  5. ALL OTHER THERAPEUTIC PRODUCTS [Concomitant]
     Dosage: UNK
     Dates: start: 20081101

REACTIONS (5)
  - DIARRHOEA [None]
  - FREQUENT BOWEL MOVEMENTS [None]
  - HAEMATOCHEZIA [None]
  - MUSCLE SPASMS [None]
  - WEIGHT DECREASED [None]
